FAERS Safety Report 7178196-0 (Version None)
Quarter: 2010Q4

REPORT INFORMATION
  Report Type: 
  Country: None (occurrence: None)
  Receive Date: 20101220
  Receipt Date: 20101210
  Transmission Date: 20110411
  Serious: Yes (Hospitalization)
  Sender: FDA-Public Use
  Company Number: US-AMGEN-USASP2010008621

PATIENT

DRUGS (1)
  1. ENBREL [Suspect]
     Indication: RHEUMATOID ARTHRITIS
     Dosage: 50 MG, QWK
     Dates: start: 20080503, end: 20101126

REACTIONS (11)
  - ABDOMINAL DISTENSION [None]
  - ABDOMINAL PAIN [None]
  - BACK PAIN [None]
  - BLOOD AMYLASE ABNORMAL [None]
  - DYSPNOEA [None]
  - FAECES DISCOLOURED [None]
  - HEPATIC ENZYME INCREASED [None]
  - HYPOTENSION [None]
  - OEDEMA PERIPHERAL [None]
  - RENAL FAILURE [None]
  - WEIGHT INCREASED [None]
